FAERS Safety Report 10529849 (Version 1)
Quarter: 2014Q4

REPORT INFORMATION
  Report Type: Spontaneous
  Country: IT (occurrence: IT)
  Receive Date: 20141021
  Receipt Date: 20141021
  Transmission Date: 20150528
  Serious: Yes (Other)
  Sender: FDA-Public Use
  Company Number: IT-AMGEN-ITASP2014080262

PATIENT
  Age: 66 Year
  Sex: Female
  Weight: 45 kg

DRUGS (5)
  1. ZOMETA [Suspect]
     Active Substance: ZOLEDRONIC ACID
     Indication: BREAST CANCER METASTATIC
     Dosage: 4 MG,(MONTHLY) UNK
     Route: 042
     Dates: start: 20120701, end: 20140630
  2. PANTOPRAZOLE [Concomitant]
     Active Substance: PANTOPRAZOLE SODIUM
     Indication: PROPHYLAXIS
     Dosage: 1 UNK,(POSOLOGIC UNIT) UNK
     Route: 048
  3. XGEVA [Suspect]
     Active Substance: DENOSUMAB
     Indication: BREAST CANCER METASTATIC
     Dosage: 120 MG, UNK(MONTHLY)
     Route: 058
     Dates: start: 20140701, end: 20140715
  4. DELTACORTENE [Concomitant]
     Active Substance: PREDNISONE
     Dosage: 1 UNK, (POSOLOGIC UNIT)UNK
     Route: 048
  5. OXYCONTIN [Concomitant]
     Active Substance: OXYCODONE HYDROCHLORIDE
     Indication: PAIN
     Dosage: 1 UNK, (POSOLOGIC UNIT)UNK
     Route: 048

REACTIONS (1)
  - Osteonecrosis of jaw [Recovered/Resolved]

NARRATIVE: CASE EVENT DATE: 20140715
